FAERS Safety Report 4754406-1 (Version None)
Quarter: 2005Q3

REPORT INFORMATION
  Report Type: 
  Country: None (occurrence: None)
  Receive Date: 20050829
  Receipt Date: 20010925
  Transmission Date: 20060218
  Serious: Yes (Death)
  Sender: FDA-Public Use
  Company Number: FR-BOEHRINGER INGELHEIM PHARMACEUTICALS, INC.-2001-FF-S0627

PATIENT
  Age: 64 Year
  Sex: Male
  Weight: 72 kg

DRUGS (6)
  1. VIRAMUNE [Suspect]
     Indication: HIV INFECTION
     Route: 048
     Dates: start: 20010112, end: 20010630
  2. NORSET [Concomitant]
     Indication: DYSTHYMIC DISORDER
     Route: 048
     Dates: start: 20001215, end: 20010630
  3. RISORDAN [Concomitant]
     Indication: ANGINA PECTORIS
     Route: 048
     Dates: start: 19910615, end: 20010630
  4. DILTIAZEM [Concomitant]
     Indication: ESSENTIAL HYPERTENSION
     Route: 048
     Dates: start: 19910615, end: 20010630
  5. ZOCOR [Concomitant]
     Indication: HYPERCHOLESTEROLAEMIA
     Route: 048
     Dates: start: 19910615, end: 20010630
  6. COMBIVIR [Concomitant]
     Indication: HIV INFECTION
     Route: 048
     Dates: start: 19980615, end: 20010630

REACTIONS (3)
  - CARDIAC ARREST [None]
  - ELECTROCARDIOGRAM ABNORMAL [None]
  - SHOCK [None]
